FAERS Safety Report 10340192 (Version 4)
Quarter: 2014Q3

REPORT INFORMATION
  Report Type: Report from Study
  Country: GB (occurrence: GB)
  Receive Date: 20140724
  Receipt Date: 20140826
  Transmission Date: 20150326
  Serious: Yes (Death, Hospitalization)
  Sender: FDA-Public Use
  Company Number: GB-BRISTOL-MYERS SQUIBB COMPANY-21217179

PATIENT
  Age: 61 Year
  Sex: Female
  Weight: 89 kg

DRUGS (3)
  1. IPILIMUMAB [Suspect]
     Active Substance: IPILIMUMAB
     Indication: SMALL CELL LUNG CANCER
     Dosage: RECENT ADMINISTRATION: 18-JUN-2014
     Dates: start: 20131231, end: 20140618
  2. ETOPOSIDE. [Suspect]
     Active Substance: ETOPOSIDE
     Indication: SMALL CELL LUNG CANCER
     Dosage: RECENT ADMINISTRATION: 05-MAR-2014
     Dates: start: 20131111, end: 20140305
  3. CARBOPLATIN. [Suspect]
     Active Substance: CARBOPLATIN
     Indication: SMALL CELL LUNG CANCER
     Dosage: RECENT ADMINISTRATION: 05-MAR-2014
     Dates: start: 20131111, end: 20140305

REACTIONS (2)
  - Malignant neoplasm progression [Fatal]
  - Pneumonitis [Fatal]

NARRATIVE: CASE EVENT DATE: 20140712
